FAERS Safety Report 5200185-3 (Version None)
Quarter: 2007Q1

REPORT INFORMATION
  Report Type: 
  Country: None (occurrence: None)
  Receive Date: 20070103
  Receipt Date: 20061219
  Transmission Date: 20070707
  Serious: Yes (Hospitalization, Other)
  Sender: FDA-Public Use
  Company Number: 2006-151800-NL

PATIENT
  Age: 29 Year
  Sex: Female
  Weight: 54.4 kg

DRUGS (2)
  1. PUREGON [Suspect]
     Indication: IN VITRO FERTILISATION
     Dosage: 200 IU DAILY;
     Dates: start: 20061024, end: 20061101
  2. ORGALUTRAN [Suspect]
     Dosage: 215 UG, DAILY;
     Dates: start: 20061031, end: 20061101

REACTIONS (3)
  - ABORTION INDUCED [None]
  - ECTOPIC PREGNANCY [None]
  - PELVIC PAIN [None]
